FAERS Safety Report 6565416-6 (Version None)
Quarter: 2010Q1

REPORT INFORMATION
  Report Type: 
  Country: None (occurrence: None)
  Receive Date: 20100201
  Receipt Date: 20100120
  Transmission Date: 20100710
  Serious: Yes (Hospitalization)
  Sender: FDA-Public Use
  Company Number: PHHY2010FR04283

PATIENT
  Age: 33 Year
  Sex: Female
  Weight: 44 kg

DRUGS (5)
  1. CYCLOSPORINE [Suspect]
     Indication: IMMUNOSUPPRESSION
  2. THYMOGLOBULIN [Concomitant]
     Indication: IMMUNOSUPPRESSION
     Dosage: UNK
  3. AZATHIOPRINE [Concomitant]
     Indication: IMMUNOSUPPRESSION
     Dosage: 2 MG/KG/DAY
  4. PREDNISONE [Suspect]
     Indication: IMMUNOSUPPRESSION
     Dosage: 1 MG/KG/DAY
  5. PREDNISONE [Suspect]
     Dosage: 10 MG

REACTIONS (21)
  - ANGIOPATHY [None]
  - ARTERIAL THROMBOSIS [None]
  - BACK PAIN [None]
  - BLOOD CREATININE INCREASED [None]
  - CARDIOPULMONARY BYPASS [None]
  - CHEST DISCOMFORT [None]
  - DEVICE RELATED INFECTION [None]
  - ECCHYMOSIS [None]
  - FUNGAL ENDOCARDITIS [None]
  - GRAFT DYSFUNCTION [None]
  - INFECTION [None]
  - MITRAL VALVE INCOMPETENCE [None]
  - NEUROPATHY PERIPHERAL [None]
  - PAIN [None]
  - PLEURAL DISORDER [None]
  - PURULENT DISCHARGE [None]
  - PYREXIA [None]
  - RENAL FAILURE [None]
  - RESPIRATORY RATE DECREASED [None]
  - SURGERY [None]
  - THROMBOSIS [None]
